FAERS Safety Report 11271368 (Version 2)
Quarter: 2015Q4

REPORT INFORMATION
  Report Type: Spontaneous
  Country: FR (occurrence: FR)
  Receive Date: 20150714
  Receipt Date: 20151026
  Transmission Date: 20160304
  Serious: Yes (Congenital Anomaly, Other)
  Sender: FDA-Public Use
  Company Number: FR-ABBVIE-15P-056-1425196-00

PATIENT
  Sex: Male

DRUGS (1)
  1. DEPAKINE CHRONO [Suspect]
     Active Substance: VALPROATE SODIUM
     Indication: MATERNAL EXPOSURE TIMING UNSPECIFIED
     Route: 064

REACTIONS (16)
  - Multiple congenital abnormalities [Not Recovered/Not Resolved]
  - Congenital hand malformation [Not Recovered/Not Resolved]
  - Mental retardation [Unknown]
  - Psychotic disorder [Unknown]
  - Congenital foot malformation [Not Recovered/Not Resolved]
  - Atrial septal defect [Not Recovered/Not Resolved]
  - Synovitis [Unknown]
  - Coagulopathy [Not Recovered/Not Resolved]
  - Psychomotor skills impaired [Unknown]
  - Insomnia [Unknown]
  - Ventricular septal defect [Unknown]
  - Osteochondroma [Not Recovered/Not Resolved]
  - Delirium [Not Recovered/Not Resolved]
  - Ligament laxity [Unknown]
  - Foetal exposure during pregnancy [Unknown]
  - Irritable bowel syndrome [Unknown]

NARRATIVE: CASE EVENT DATE: 200302
